FAERS Safety Report 7190758-3 (Version None)
Quarter: 2010Q4

REPORT INFORMATION
  Report Type: 
  Country: None (occurrence: None)
  Receive Date: 20101223
  Receipt Date: 20101220
  Transmission Date: 20110411
  Serious: Yes (Life-Threatening, Hospitalization, Other)
  Sender: FDA-Public Use
  Company Number: BR-PFIZER INC-2010176221

PATIENT
  Age: 51 Year
  Sex: Male

DRUGS (3)
  1. FELDENE [Suspect]
     Indication: BLOOD URIC ACID
     Dosage: 20 MG, AS NEEDED
     Route: 048
     Dates: start: 19940101
  2. FELDENE [Suspect]
     Indication: LIMB INJURY
  3. SIMVASTATIN [Concomitant]
     Indication: BLOOD CHOLESTEROL INCREASED

REACTIONS (6)
  - ARTERIAL OCCLUSIVE DISEASE [None]
  - HYPERTENSION [None]
  - INFARCTION [None]
  - JOINT LOCK [None]
  - NECK PAIN [None]
  - NODULE [None]
